FAERS Safety Report 14340377 (Version 2)
Quarter: 2020Q3

REPORT INFORMATION
  Report Type: Report from Study
  Country: ES (occurrence: ES)
  Receive Date: 20180101
  Receipt Date: 20200709
  Transmission Date: 20201102
  Serious: Yes (Death, Other)
  Sender: FDA-Public Use
  Company Number: ES-ROCHE-2045787

PATIENT

DRUGS (2)
  1. CAPECITABINE. [Suspect]
     Active Substance: CAPECITABINE
     Indication: COLORECTAL CANCER METASTATIC
     Dosage: DAYS 1?14 OF A 3 WKS CYCLE
     Route: 065
  2. PANITUMUMAB [Suspect]
     Active Substance: PANITUMUMAB
     Indication: COLORECTAL CANCER METASTATIC
     Dosage: DAY 1, EVERY 3 WEEKS
     Route: 065

REACTIONS (14)
  - Palmar-plantar erythrodysaesthesia syndrome [Unknown]
  - Skin toxicity [Unknown]
  - Mucosal inflammation [Fatal]
  - Erythema [Unknown]
  - Nail toxicity [Unknown]
  - Ocular toxicity [Unknown]
  - Rash [Unknown]
  - Pruritus [Unknown]
  - Intestinal haemorrhage [Fatal]
  - Diarrhoea [Unknown]
  - Decreased appetite [Unknown]
  - Xerosis [Unknown]
  - Hypomagnesaemia [Unknown]
  - Paronychia [Unknown]
